FAERS Safety Report 8962378 (Version 1)
Quarter: 2012Q4

REPORT INFORMATION
  Report Type: Spontaneous
  Country: US (occurrence: None)
  Receive Date: 20121211
  Receipt Date: 20121211
  Transmission Date: 20130627
  Serious: Yes (Death, Hospitalization)
  Sender: FDA-Public Use
  Company Number: None

PATIENT
  Sex: Male
  Weight: 70.1 kg

DRUGS (2)
  1. DAUNORUBICIN [Suspect]
     Dates: end: 20120927
  2. PEG/L-ASPARAGINASE [Suspect]
     Dates: end: 20121001

REACTIONS (1)
  - Adverse event [None]
